FAERS Safety Report 24395082 (Version 1)
Quarter: 2024Q4

REPORT INFORMATION
  Report Type: Spontaneous
  Country: US (occurrence: US)
  Receive Date: 20241004
  Receipt Date: 20241004
  Transmission Date: 20250115
  Serious: No
  Sender: ELI LILLY AND CO
  Company Number: US-ELI_LILLY_AND_COMPANY-US202409018687

PATIENT
  Age: 61 Year
  Sex: Female

DRUGS (3)
  1. ZEPBOUND [Suspect]
     Active Substance: TIRZEPATIDE
     Indication: Weight control
     Dosage: 5 MG, UNKNOWN
     Route: 065
     Dates: start: 20240920
  2. SYMBYAX [Concomitant]
     Active Substance: FLUOXETINE HYDROCHLORIDE\OLANZAPINE
     Indication: Product used for unknown indication
     Dosage: UNK UNK, UNKNOWN
     Route: 065
  3. CLONAZEPAM [Concomitant]
     Active Substance: CLONAZEPAM
     Indication: Product used for unknown indication
     Dosage: UNK UNK, UNKNOWN
     Route: 065

REACTIONS (7)
  - Extra dose administered [Unknown]
  - Pain [Unknown]
  - Influenza like illness [Unknown]
  - Feeding disorder [Unknown]
  - Dizziness [Unknown]
  - Asthenia [Unknown]
  - Nausea [Unknown]

NARRATIVE: CASE EVENT DATE: 20240920
